FAERS Safety Report 6180467-1 (Version None)
Quarter: 2009Q2

REPORT INFORMATION
  Report Type: 
  Country: None (occurrence: None)
  Receive Date: 20090415
  Receipt Date: 20090309
  Transmission Date: 20091009
  Serious: Yes (Other)
  Sender: FDA-Public Use
  Company Number: 2250051-2009-00096

PATIENT
  Age: 17 Year
  Sex: Female
  Weight: 50 kg

DRUGS (1)
  1. RHOGAM ULTRA-FILTERED PLUS [Suspect]
     Dosage: 300 UG 1X IM
     Route: 030

REACTIONS (1)
  - ANTI-HBC IGG ANTIBODY POSITIVE [None]
